FAERS Safety Report 7072822-2 (Version None)
Quarter: 2010Q4

REPORT INFORMATION
  Report Type: 
  Country: None (occurrence: None)
  Receive Date: 20101028
  Receipt Date: 20101028
  Transmission Date: 20110411
  Serious: No
  Sender: FDA-Public Use
  Company Number: None

PATIENT
  Sex: Female

DRUGS (1)
  1. RISPERIDONE [Suspect]
     Dosage: 4MG QHS PO
     Route: 048
     Dates: start: 20101007, end: 20101014

REACTIONS (1)
  - BLOOD PROLACTIN INCREASED [None]
